FAERS Safety Report 9271040 (Version 1)
Quarter: 2013Q2

REPORT INFORMATION
  Report Type: Report from Study
  Country: CA (occurrence: CA)
  Receive Date: 20130506
  Receipt Date: 20130506
  Transmission Date: 20140414
  Serious: Yes (Hospitalization)
  Sender: FDA-Public Use
  Company Number: CA-JNJFOC-20130415197

PATIENT
  Age: 50 Year
  Sex: Female

DRUGS (2)
  1. STELARA [Suspect]
     Indication: CROHN^S DISEASE
     Route: 058
     Dates: start: 2012, end: 2012
  2. STELARA [Suspect]
     Indication: CROHN^S DISEASE
     Route: 058
     Dates: start: 2012

REACTIONS (2)
  - Intestinal obstruction [Unknown]
  - Drug effect decreased [Unknown]
